FAERS Safety Report 7054893-2 (Version None)
Quarter: 2010Q4

REPORT INFORMATION
  Report Type: 
  Country: None (occurrence: None)
  Receive Date: 20101021
  Receipt Date: 20101012
  Transmission Date: 20110411
  Serious: No
  Sender: FDA-Public Use
  Company Number: US-BIOGENIDEC-2010BI035699

PATIENT
  Sex: Female

DRUGS (8)
  1. TYSABRI [Suspect]
     Indication: MULTIPLE SCLEROSIS
     Route: 042
     Dates: start: 20090201
  2. BUPROPION [Concomitant]
     Indication: DEPRESSION
  3. MELOXICAM [Concomitant]
     Indication: ARTHRITIS
  4. TIZANIDINE HCL [Concomitant]
     Indication: MUSCLE SPASTICITY
     Route: 048
  5. HIGH BLOOD PRESSURE MEDICATION (NOS) [Concomitant]
     Indication: HYPERTENSION
  6. PROVIGIL [Concomitant]
  7. ADDERALL 10 [Concomitant]
     Indication: FATIGUE
  8. TRAMADOL HCL [Concomitant]
     Indication: PAIN

REACTIONS (4)
  - GENITAL HERPES [None]
  - MUSCLE SPASTICITY [None]
  - PAIN [None]
  - PAPILLOMA VIRAL INFECTION [None]
